FAERS Safety Report 8652536 (Version 2)
Quarter: 2012Q4

REPORT INFORMATION
  Report Type: 
  Country: JP (occurrence: JP)
  Receive Date: 20120706
  Receipt Date: 20120905
  Transmission Date: 20130627
  Serious: Yes (Disabling)
  Sender: FDA-Public Use
  Company Number: JP-ROCHE-1082932

PATIENT
  Age: 59 Year
  Sex: Female

DRUGS (4)
  1. AVASTIN [Suspect]
     Indication: BREAST CANCER RECURRENT
     Route: 041
     Dates: start: 20120420, end: 20120511
  2. PACLITAXEL [Suspect]
     Indication: BREAST CANCER RECURRENT
     Dosage: Dosage is uncertain.
     Route: 041
     Dates: start: 20120309, end: 20120309
  3. PACLITAXEL [Suspect]
     Indication: BREAST CANCER RECURRENT
     Route: 041
     Dates: start: 20120420, end: 20120511
  4. GEMZAR [Concomitant]
     Indication: BREAST CANCER RECURRENT
     Dosage: Dosage is uncertain.
     Route: 041
     Dates: start: 20120309, end: 20120406

REACTIONS (1)
  - Neurotoxicity [Not Recovered/Not Resolved]
